FAERS Safety Report 13572187 (Version 1)
Quarter: 2017Q2

REPORT INFORMATION
  Report Type: Spontaneous
  Country: US (occurrence: US)
  Receive Date: 20170523
  Receipt Date: 20170523
  Transmission Date: 20170830
  Serious: Yes (Death, Hospitalization, Other)
  Sender: FDA-Public Use
  Company Number: US-TEVA-770702USA

PATIENT
  Age: 49 Year
  Sex: Male

DRUGS (3)
  1. MELATONIN [Suspect]
     Active Substance: MELATONIN
     Indication: INTENTIONAL OVERDOSE
     Dosage: UNKNOWN QUANTITY
     Route: 065
  2. HYDROCODONE BITARTRATE AND ACETAMINOPHEN [Suspect]
     Active Substance: ACETAMINOPHEN\HYDROCODONE BITARTRATE
     Indication: INTENTIONAL OVERDOSE
     Dosage: 7.5MG/325MG (APPROXIMATELY 40 TABLETS)
     Route: 065
  3. ASPIRIN. [Suspect]
     Active Substance: ASPIRIN
     Indication: INTENTIONAL OVERDOSE
     Dosage: UNKNOWN QUANTITY
     Route: 065

REACTIONS (7)
  - Agitation [Unknown]
  - Cardiac arrest [Fatal]
  - Tachypnoea [Not Recovered/Not Resolved]
  - Tachycardia [Not Recovered/Not Resolved]
  - Confusional state [Unknown]
  - Seizure [Unknown]
  - Intentional overdose [Not Recovered/Not Resolved]
